FAERS Safety Report 12073246 (Version 4)
Quarter: 2016Q2

REPORT INFORMATION
  Report Type: Spontaneous
  Country: IL (occurrence: IL)
  Receive Date: 20160212
  Receipt Date: 20160401
  Transmission Date: 20160815
  Serious: Yes (Hospitalization, Other)
  Sender: FDA-Public Use
  Company Number: IL-JNJFOC-20150302295

PATIENT
  Age: 70 Year
  Sex: Female

DRUGS (1)
  1. SIMPONI [Suspect]
     Active Substance: GOLIMUMAB
     Indication: RHEUMATOID ARTHRITIS
     Route: 058
     Dates: start: 20140626

REACTIONS (13)
  - Knee operation [Recovered/Resolved]
  - Treatment noncompliance [Not Recovered/Not Resolved]
  - Drug dose omission [Unknown]
  - Pain [Unknown]
  - Cardiac fibrillation [Not Recovered/Not Resolved]
  - Drug effect decreased [Unknown]
  - Dysstasia [Not Recovered/Not Resolved]
  - Fatigue [Not Recovered/Not Resolved]
  - Device malfunction [Unknown]
  - Arthralgia [Not Recovered/Not Resolved]
  - Urinary incontinence [Not Recovered/Not Resolved]
  - Dyspnoea [Unknown]
  - Asthenia [Not Recovered/Not Resolved]

NARRATIVE: CASE EVENT DATE: 201406
